FAERS Safety Report 18689532 (Version 5)
Quarter: 2022Q4

REPORT INFORMATION
  Report Type: Spontaneous
  Country: IT (occurrence: IT)
  Receive Date: 20201231
  Receipt Date: 20221104
  Transmission Date: 20230112
  Serious: Yes (Hospitalization, Other)
  Sender: FDA-Public Use
  Company Number: IT-MLMSERVICE-20201216-2630801-1

PATIENT
  Age: 58 Year
  Sex: Male

DRUGS (14)
  1. DARUNAVIR [Suspect]
     Active Substance: DARUNAVIR
     Indication: HIV infection
     Route: 048
     Dates: start: 2016
  2. DARUNAVIR [Suspect]
     Active Substance: DARUNAVIR
     Indication: Hepatitis C
  3. DOLUTEGRAVIR [Suspect]
     Active Substance: DOLUTEGRAVIR
     Indication: Hepatitis C
     Route: 065
     Dates: start: 2016
  4. DOLUTEGRAVIR [Suspect]
     Active Substance: DOLUTEGRAVIR
     Indication: HIV infection
  5. COAGULATION FACTOR VIIA HUMAN [Concomitant]
     Active Substance: COAGULATION FACTOR VIIA HUMAN
     Indication: Factor VIII deficiency
     Dosage: 3,000 I.U. THREE TIMES A WEEK
     Route: 065
     Dates: start: 201709
  6. COAGULATION FACTOR VIIA HUMAN [Concomitant]
     Active Substance: COAGULATION FACTOR VIIA HUMAN
     Route: 065
     Dates: start: 201709
  7. ASPIRIN [Concomitant]
     Active Substance: ASPIRIN
     Indication: Acute myocardial infarction
     Route: 065
     Dates: start: 201704
  8. ASPIRIN [Concomitant]
     Active Substance: ASPIRIN
     Indication: Antiplatelet therapy
  9. CLOPIDOGREL [Concomitant]
     Active Substance: CLOPIDOGREL BISULFATE
     Indication: Acute myocardial infarction
     Route: 065
     Dates: start: 201704
  10. CLOPIDOGREL [Concomitant]
     Active Substance: CLOPIDOGREL BISULFATE
     Indication: Antiplatelet therapy
  11. SIMOCTOCOG ALFA [Concomitant]
     Indication: Factor VIII deficiency
     Dosage: QOD
     Route: 065
     Dates: start: 201709
  12. SIMOCTOCOG ALFA [Concomitant]
     Indication: Anticoagulant therapy
     Route: 065
  13. SIMOCTOCOG ALFA [Concomitant]
     Dosage: QW3
     Route: 065
  14. ANTIHEMOPHILIC FACTOR, HUMAN RECOMBINANT [Concomitant]
     Active Substance: ANTIHEMOPHILIC FACTOR, HUMAN RECOMBINANT
     Indication: Factor VIII deficiency
     Dosage: QOD
     Route: 065

REACTIONS (1)
  - Rhabdomyolysis [Unknown]

NARRATIVE: CASE EVENT DATE: 20200401
